FAERS Safety Report 18736720 (Version 1)
Quarter: 2021Q1

REPORT INFORMATION
  Report Type: Spontaneous
  Country: CA (occurrence: CA)
  Receive Date: 20210113
  Receipt Date: 20210113
  Transmission Date: 20210419
  Serious: Yes (Death, Other)
  Sender: FDA-Public Use
  Company Number: CA-PURDUE-USA-2020-0197007

PATIENT
  Sex: Male

DRUGS (4)
  1. HYDROMORPHONE [Suspect]
     Active Substance: HYDROMORPHONE
     Indication: SPINAL PAIN
     Dosage: UNKNOWN
     Route: 048
  2. OXYCODONE AND ACETAMINOPHEN [Suspect]
     Active Substance: ACETAMINOPHEN\OXYCODONE HYDROCHLORIDE
     Indication: SPINAL PAIN
     Dosage: UNKNOWN
     Route: 048
  3. OXYCONTIN [Suspect]
     Active Substance: OXYCODONE HYDROCHLORIDE
     Indication: SPINAL PAIN
     Dosage: UNKNOWN
     Route: 048
  4. DILAUDID [Suspect]
     Active Substance: HYDROMORPHONE HYDROCHLORIDE
     Indication: SPINAL PAIN
     Dosage: UNKNOWN
     Route: 048

REACTIONS (8)
  - Drug dependence [Unknown]
  - Myelodysplastic syndrome [Fatal]
  - Decreased immune responsiveness [Unknown]
  - Depression [Unknown]
  - Tooth loss [Unknown]
  - Hormone level abnormal [Unknown]
  - Anxiety [Unknown]
  - Lymphoma [Fatal]

NARRATIVE: CASE EVENT DATE: 201404
